FAERS Safety Report 8123133-5 (Version None)
Quarter: 2012Q1

REPORT INFORMATION
  Report Type: 
  Country: None (occurrence: None)
  Receive Date: 20120206
  Receipt Date: 20120124
  Transmission Date: 20120608
  Serious: Yes (Death, Hospitalization, Other)
  Sender: FDA-Public Use
  Company Number: 2012MA001058

PATIENT
  Sex: Male
  Weight: 52.1637 kg

DRUGS (19)
  1. COMBIVENT [Concomitant]
  2. PERCOCET [Concomitant]
  3. ADVAIR DISKUS 100/50 [Concomitant]
  4. ALDACTONE [Concomitant]
  5. ZOCOR [Concomitant]
  6. ATIVAN [Concomitant]
  7. DEP-MEDROL [Concomitant]
  8. LEVAQUIN [Concomitant]
  9. DIGOXIN [Suspect]
  10. ALTACE [Concomitant]
  11. COREG [Concomitant]
  12. PLAVIX [Concomitant]
  13. CELEBREX [Concomitant]
  14. NITROGLYCERIN [Concomitant]
  15. PHENERGAN [Concomitant]
  16. PROTONIX [Concomitant]
  17. ZOLOFT [Concomitant]
  18. BUMEX [Concomitant]
  19. IMDUR [Concomitant]

REACTIONS (50)
  - JOINT EFFUSION [None]
  - DYSPNOEA [None]
  - NAUSEA [None]
  - SYNCOPE [None]
  - ARTHRALGIA [None]
  - PAIN [None]
  - GENERAL PHYSICAL HEALTH DETERIORATION [None]
  - AORTIC ANEURYSM [None]
  - CONFUSIONAL STATE [None]
  - RHONCHI [None]
  - HAEMOGLOBIN DECREASED [None]
  - PRODUCTIVE COUGH [None]
  - ORTHOPNOEA [None]
  - CHILLS [None]
  - BURNING SENSATION [None]
  - BLOOD CHOLESTEROL ABNORMAL [None]
  - RENAL FAILURE [None]
  - HYPERTENSION [None]
  - CORONARY ARTERY DISEASE [None]
  - BURSITIS [None]
  - HAEMATOCRIT DECREASED [None]
  - PULMONARY CONGESTION [None]
  - HYPOAESTHESIA ORAL [None]
  - MENTAL STATUS CHANGES [None]
  - ACUTE MYOCARDIAL INFARCTION [None]
  - LIPOMA [None]
  - RENAL FAILURE ACUTE [None]
  - OEDEMA PERIPHERAL [None]
  - ATELECTASIS [None]
  - MALAISE [None]
  - SCAR [None]
  - INSOMNIA [None]
  - HYPOPHAGIA [None]
  - DEHYDRATION [None]
  - CARDIAC FAILURE CONGESTIVE [None]
  - WHEEZING [None]
  - CARDIOMEGALY [None]
  - ABDOMINAL PAIN [None]
  - CHRONIC OBSTRUCTIVE PULMONARY DISEASE [None]
  - RENAL MASS [None]
  - ARTERIAL INSUFFICIENCY [None]
  - DEPRESSION [None]
  - ANXIETY [None]
  - URINARY TRACT INFECTION [None]
  - GOUTY ARTHRITIS [None]
  - CONDITION AGGRAVATED [None]
  - BRONCHITIS [None]
  - HYPOTENSION [None]
  - SKIN ULCER [None]
  - CARDIOMYOPATHY [None]
